FAERS Safety Report 7799705 (Version 2)
Quarter: 2012Q4

REPORT INFORMATION
  Report Type: 
  Country: VE (occurrence: VE)
  Receive Date: 20110204
  Receipt Date: 20121112
  Transmission Date: 20130627
  Serious: Yes (Other)
  Sender: FDA-Public Use
  Company Number: PHHY2011VE07168

PATIENT
  Sex: Female

DRUGS (7)
  1. ACLASTA [Suspect]
     Indication: OSTEOPENIA
     Dosage: 5 mg annually
     Route: 042
     Dates: start: 20101023
  2. GALVUS MET [Suspect]
     Indication: DIABETES MELLITUS
     Dosage: UNK UKN, UNK
     Route: 048
     Dates: start: 2009
  3. PLAVIX [Concomitant]
     Dosage: UNK
  4. GALVUS [Concomitant]
  5. GLUCOFAGE [Concomitant]
  6. ANTIHYPERTENSIVES [Concomitant]
  7. BENICAR [Concomitant]

REACTIONS (1)
  - Anal haemorrhage [Recovered/Resolved]
